FAERS Safety Report 4513881-8 (Version None)
Quarter: 2004Q4

REPORT INFORMATION
  Report Type: 
  Country: None (occurrence: None)
  Receive Date: 20041130
  Receipt Date: 20040920
  Transmission Date: 20050328
  Serious: No
  Sender: FDA-Public Use
  Company Number: US-GLAXOSMITHKLINE-A0526636A

PATIENT
  Age: 45 Year
  Sex: Female
  Weight: 61.4 kg

DRUGS (3)
  1. WELLBUTRIN XL [Suspect]
     Indication: ILL-DEFINED DISORDER
     Route: 048
  2. ADDERALL 20 [Concomitant]
     Dosage: 15MG UNKNOWN
     Route: 048
  3. ORAL CONTRACEPTIVE [Concomitant]
     Route: 048

REACTIONS (1)
  - ALOPECIA [None]
